FAERS Safety Report 6247416-9 (Version None)
Quarter: 2009Q2

REPORT INFORMATION
  Report Type: 
  Country: None (occurrence: None)
  Receive Date: 20090626
  Receipt Date: 20090616
  Transmission Date: 20091009
  Serious: Yes (Disabling)
  Sender: FDA-Public Use
  Company Number: GB-PFIZER INC-2009227422

PATIENT
  Age: 65 Year

DRUGS (7)
  1. CHAMPIX [Suspect]
     Indication: SMOKING CESSATION THERAPY
     Dosage: UNK
     Route: 048
     Dates: start: 20090516, end: 20090526
  2. AMLODIPINE [Concomitant]
     Dosage: 5 MG, UNK
     Route: 048
  3. ATENOLOL [Concomitant]
     Dosage: 100 MG, UNK
     Route: 048
  4. DOXAZOSIN [Concomitant]
     Dosage: 12 MG, UNK
  5. PREGABALIN [Concomitant]
     Dosage: 25 MG, UNK
     Route: 048
  6. RAMIPRIL [Concomitant]
     Indication: HYPERTENSION
     Dosage: 10 MG, UNK
     Route: 048
  7. SIMVASTATIN [Concomitant]
     Dosage: 40 MG, UNK
     Route: 048

REACTIONS (4)
  - DIARRHOEA [None]
  - FEELING ABNORMAL [None]
  - SOMNOLENCE [None]
  - VISION BLURRED [None]
